FAERS Safety Report 18788983 (Version 1)
Quarter: 2021Q1

REPORT INFORMATION
  Report Type: Spontaneous
  Country: US (occurrence: US)
  Receive Date: 20210126
  Receipt Date: 20210126
  Transmission Date: 20210419
  Serious: Yes (Life-Threatening, Hospitalization, Other)
  Sender: FDA-Public Use
  Company Number: US-ADAREPHARM-2021-US-000003

PATIENT
  Age: 16 Year
  Sex: Female

DRUGS (3)
  1. PROPRANOLOL [Suspect]
     Active Substance: PROPRANOLOL HYDROCHLORIDE
     Dosage: OVERDOSE
  2. DOXEPIN [Suspect]
     Active Substance: DOXEPIN
     Dosage: OVERDOSE
  3. NAPROSYN [Concomitant]
     Active Substance: NAPROXEN

REACTIONS (11)
  - Electrocardiogram QRS complex prolonged [Recovering/Resolving]
  - Hypotension [Recovering/Resolving]
  - Haemodynamic instability [Recovering/Resolving]
  - Seizure [Recovering/Resolving]
  - Cardiac arrest [Recovering/Resolving]
  - Pulseless electrical activity [Recovering/Resolving]
  - Toxicity to various agents [Recovering/Resolving]
  - Cardiotoxicity [Recovering/Resolving]
  - Tachycardia [Recovering/Resolving]
  - Ventricular dysfunction [Recovering/Resolving]
  - Overdose [Recovering/Resolving]
